FAERS Safety Report 17983814 (Version 1)
Quarter: 2020Q3

REPORT INFORMATION
  Report Type: Spontaneous
  Country: US (occurrence: US)
  Receive Date: 20200705
  Receipt Date: 20200705
  Transmission Date: 20201103
  Serious: Yes (Disabling, Other)
  Sender: FDA-Public Use
  Company Number: None

PATIENT
  Age: 56 Year
  Sex: Female
  Weight: 56.25 kg

DRUGS (1)
  1. DEXAMETHASONE SODIUM PHOSPHATE INJECTION [Suspect]
     Active Substance: DEXAMETHASONE SODIUM PHOSPHATE
     Indication: SINUSITIS
     Dosage: ?          OTHER ROUTE:INJECTION INTO THE BUTTOCKS?

REACTIONS (9)
  - Confusional state [None]
  - Amnesia [None]
  - Speech disorder [None]
  - Headache [None]
  - Cognitive disorder [None]
  - Hallucination [None]
  - Fear [None]
  - Anxiety [None]
  - Head discomfort [None]

NARRATIVE: CASE EVENT DATE: 20190607
